FAERS Safety Report 6866146-3 (Version None)
Quarter: 2010Q3

REPORT INFORMATION
  Report Type: 
  Country: None (occurrence: None)
  Receive Date: 20100722
  Receipt Date: 20100709
  Transmission Date: 20110219
  Serious: Yes (Other)
  Sender: FDA-Public Use
  Company Number: NL-ELI_LILLY_AND_COMPANY-NL201005002040

PATIENT
  Sex: Female
  Weight: 80 kg

DRUGS (1)
  1. FORTEO [Suspect]
     Indication: OSTEOPOROSIS
     Dosage: UNK, DAILY (1/D)
     Route: 058
     Dates: start: 20091222, end: 20100503

REACTIONS (2)
  - CYSTITIS HAEMORRHAGIC [None]
  - REDUCED BLADDER CAPACITY [None]
